FAERS Safety Report 4375450-2 (Version None)
Quarter: 2004Q2

REPORT INFORMATION
  Report Type: 
  Country: None (occurrence: None)
  Receive Date: 20040607
  Receipt Date: 20040526
  Transmission Date: 20050107
  Serious: Yes (Hospitalization)
  Sender: FDA-Public Use
  Company Number: 8005310

PATIENT
  Age: 47 Year
  Sex: Female
  Weight: 67.27 kg

DRUGS (12)
  1. KEPPRA [Suspect]
     Indication: CONVULSION
     Dosage: 500 MG 2/D PO
     Route: 048
     Dates: start: 20031101, end: 20031126
  2. KEPPRA [Suspect]
     Indication: CONVULSION
     Dosage: 750 MG 2/D PO
     Route: 048
     Dates: start: 20031127
  3. ZONEGRAN [Concomitant]
  4. TRILEPTAL [Concomitant]
  5. BAYASPIRIN [Concomitant]
  6. LEXAPRO [Concomitant]
  7. CALCIUM [Concomitant]
  8. CENTRUM [Concomitant]
  9. CLARITIN [Concomitant]
  10. MEDROXYPROGESTERONE [Concomitant]
  11. ESTRADIOL [Concomitant]
  12. PROTONIX [Concomitant]

REACTIONS (7)
  - ABDOMINAL DISCOMFORT [None]
  - ABDOMINAL PAIN [None]
  - DIARRHOEA [None]
  - DIVERTICULUM [None]
  - HIATUS HERNIA [None]
  - LIPASE INCREASED [None]
  - PANCREATIC DISORDER [None]
